FAERS Safety Report 15831704 (Version 2)
Quarter: 2019Q1

REPORT INFORMATION
  Report Type: Spontaneous
  Country: DE (occurrence: DE)
  Receive Date: 20190116
  Receipt Date: 20190121
  Transmission Date: 20190417
  Serious: Yes (Life-Threatening, Hospitalization)
  Sender: FDA-Public Use
  Company Number: DE-JNJFOC-20190109842

PATIENT
  Sex: Female
  Weight: 63.3 kg

DRUGS (7)
  1. IBUPROFEN. [Suspect]
     Active Substance: IBUPROFEN
     Indication: STILL^S DISEASE
     Route: 048
     Dates: start: 20120130
  2. ILARIS [Suspect]
     Active Substance: CANAKINUMAB
     Indication: STILL^S DISEASE
     Route: 042
     Dates: start: 20110316
  3. IBUPROFEN. [Suspect]
     Active Substance: IBUPROFEN
     Indication: STILL^S DISEASE
     Route: 048
     Dates: start: 20111201
  4. FOLIC [Concomitant]
     Active Substance: FOLIC ACID
     Indication: STILL^S DISEASE
     Route: 048
     Dates: start: 20050101
  5. IBUPROFEN. [Suspect]
     Active Substance: IBUPROFEN
     Indication: STILL^S DISEASE
     Route: 048
  6. METHOTREXATE. [Concomitant]
     Active Substance: METHOTREXATE
     Indication: STILL^S DISEASE
     Route: 065
     Dates: start: 20050101
  7. PREDNISOLONE. [Concomitant]
     Active Substance: PREDNISOLONE
     Indication: STILL^S DISEASE
     Route: 048
     Dates: start: 20050101

REACTIONS (16)
  - Suicide attempt [Recovered/Resolved]
  - Alanine aminotransferase increased [Recovered/Resolved]
  - Blood disorder [Recovered/Resolved]
  - Incorrect route of product administration [Unknown]
  - Blood creatine phosphokinase increased [Recovered/Resolved]
  - Arthralgia [Unknown]
  - Blood lactate dehydrogenase increased [Recovered/Resolved]
  - White blood cell count decreased [Recovered/Resolved]
  - Serum ferritin increased [Recovered/Resolved]
  - Rash [Recovered/Resolved]
  - Condition aggravated [Recovered/Resolved]
  - Aspartate aminotransferase increased [Recovered/Resolved]
  - Platelet count decreased [Recovered/Resolved]
  - Pain [Recovered/Resolved]
  - Drug reaction with eosinophilia and systemic symptoms [Recovered/Resolved]
  - C-reactive protein increased [Recovered/Resolved]

NARRATIVE: CASE EVENT DATE: 20110316
